FAERS Safety Report 12764334 (Version 5)
Quarter: 2017Q1

REPORT INFORMATION
  Report Type: Spontaneous
  Country: US (occurrence: US)
  Receive Date: 20160920
  Receipt Date: 20170209
  Transmission Date: 20170428
  Serious: No
  Sender: FDA-Public Use
  Company Number: US-PFIZER INC-2016436367

PATIENT
  Age: 45 Year
  Sex: Male

DRUGS (6)
  1. DILANTIN [Interacting]
     Active Substance: PHENYTOIN
     Indication: EPILEPSY
     Dosage: UNK
  2. DILANTIN [Suspect]
     Active Substance: PHENYTOIN
     Indication: SEIZURE
     Dosage: 360 MG, 1X/DAY (QHS)
     Route: 048
     Dates: start: 2002
  3. CLONAZEPAM. [Concomitant]
     Active Substance: CLONAZEPAM
     Dosage: 1 MG, 2X/DAY
  4. ZONISAMIDE. [Concomitant]
     Active Substance: ZONISAMIDE
     Dosage: 600 MG, DAILY
     Route: 048
  5. OXCARB [Concomitant]
     Dosage: 150 MG, 1X/DAY (QHS)
  6. DIFLUCAN [Interacting]
     Active Substance: FLUCONAZOLE
     Indication: FUNGAL INFECTION
     Dosage: UNK

REACTIONS (7)
  - Feeling abnormal [Unknown]
  - Dizziness [Recovering/Resolving]
  - Dysarthria [Recovering/Resolving]
  - Drug interaction [Unknown]
  - Gait disturbance [Recovering/Resolving]
  - Blood cholesterol abnormal [Unknown]
  - Anticonvulsant drug level increased [Unknown]

NARRATIVE: CASE EVENT DATE: 20161103
